FAERS Safety Report 4921584-0 (Version None)
Quarter: 2006Q1

REPORT INFORMATION
  Report Type: 
  Country: None (occurrence: None)
  Receive Date: 20060221
  Receipt Date: 20060210
  Transmission Date: 20060701
  Serious: Yes (Other)
  Sender: FDA-Public Use
  Company Number: 2006021390

PATIENT
  Age: 50 Year
  Sex: Female
  Weight: 58.9676 kg

DRUGS (10)
  1. NEURONTIN [Suspect]
     Indication: HERPES ZOSTER
     Dosage: 2700 MG (900 MG, 3 IN 1 D), ORAL
     Route: 048
     Dates: start: 20051201
  2. IBUPROFEN [Suspect]
     Indication: TEMPOROMANDIBULAR JOINT SYNDROME
     Dosage: 2700 MG (900 MG, 3 IN 1 D), ORAL
     Route: 048
     Dates: start: 20060206, end: 20060209
  3. IMIPRAMINE [Concomitant]
  4. POTASSIUM (POTASSIUM) [Concomitant]
  5. COMPAZINE [Concomitant]
  6. MILK OF MAGNESIA TAB [Concomitant]
  7. PRILOSEC [Concomitant]
  8. CALCIUM CARBONATE (CALCIUM CARBONATE) [Concomitant]
  9. MULTIVITAMIN [Concomitant]
  10. ALDACTAZIDE [Concomitant]

REACTIONS (4)
  - CONDITION AGGRAVATED [None]
  - HAEMATEMESIS [None]
  - PHARYNGOLARYNGEAL PAIN [None]
  - TEMPOROMANDIBULAR JOINT SYNDROME [None]
